FAERS Safety Report 7789163-8 (Version None)
Quarter: 2011Q3

REPORT INFORMATION
  Report Type: 
  Country: None (occurrence: None)
  Receive Date: 20110930
  Receipt Date: 20110928
  Transmission Date: 20111222
  Serious: Yes (Life-Threatening, Hospitalization)
  Sender: FDA-Public Use
  Company Number: US-JNJFOC-20110908827

PATIENT
  Age: 8 Month
  Sex: Male

DRUGS (1)
  1. TRAMADOL HCL [Suspect]
     Indication: ACCIDENTAL EXPOSURE
     Dosage: 1-3 TABLETS OF 200 MG, EXTENDED RELEASE
     Route: 048

REACTIONS (7)
  - GRAND MAL CONVULSION [None]
  - AGITATION [None]
  - SEDATION [None]
  - APNOEIC ATTACK [None]
  - ACCIDENTAL EXPOSURE [None]
  - HEART RATE INCREASED [None]
  - RESPIRATORY DEPRESSION [None]
